FAERS Safety Report 18342544 (Version 1)
Quarter: 2020Q4

REPORT INFORMATION
  Report Type: Spontaneous
  Country: US (occurrence: US)
  Receive Date: 20201001
  Receipt Date: 20201001
  Transmission Date: 20210113
  Serious: Yes (Hospitalization)
  Sender: FDA-Public Use
  Company Number: None

PATIENT
  Age: 49 Year
  Sex: Male
  Weight: 98 kg

DRUGS (2)
  1. TRAMADOL  (TRAMADOL HCL 50MG TAB) [Suspect]
     Active Substance: TRAMADOL HYDROCHLORIDE
     Indication: PAIN
     Route: 048
     Dates: start: 20200729
  2. HYDROCHLOROTHIAZIDE/LISINOPRIL (HYDROCHLOROTHIAZIDE 25MG/LISINOPRIL 20 [Suspect]
     Active Substance: HYDROCHLOROTHIAZIDE\LISINOPRIL
     Indication: HYPERTENSION
     Route: 048
     Dates: start: 20200729

REACTIONS (6)
  - Intentional overdose [None]
  - Nausea [None]
  - Dyspnoea [None]
  - Dizziness [None]
  - Vomiting [None]
  - Sedation [None]
